FAERS Safety Report 7707917-0 (Version None)
Quarter: 2011Q3

REPORT INFORMATION
  Report Type: 
  Country: None (occurrence: None)
  Receive Date: 20110824
  Receipt Date: 20110818
  Transmission Date: 20111222
  Serious: Yes (Hospitalization)
  Sender: FDA-Public Use
  Company Number: GB-GILEAD-E2B_00001434

PATIENT
  Age: 34 Year
  Sex: Female

DRUGS (6)
  1. EFAVIRENZ [Suspect]
     Indication: HIV INFECTION
     Dates: start: 20050801
  2. ZIDOVUDINE [Suspect]
     Indication: HIV INFECTION
     Dates: start: 20050801
  3. EMTRICITABINE [Suspect]
     Indication: HIV INFECTION
  4. LAMIVUDINE [Suspect]
     Indication: HIV INFECTION
     Dates: start: 20050801
  5. VIREAD [Suspect]
     Indication: HIV INFECTION
  6. IMPLANON [Suspect]
     Indication: CONTRACEPTION
     Dates: start: 20051101

REACTIONS (6)
  - AMENORRHOEA [None]
  - ECTOPIC PREGNANCY [None]
  - INCORRECT DRUG ADMINISTRATION DURATION [None]
  - METRORRHAGIA [None]
  - DRUG INTERACTION [None]
  - PREGNANCY WITH IMPLANT CONTRACEPTIVE [None]
